FAERS Safety Report 5565935-5 (Version None)
Quarter: 2007Q4

REPORT INFORMATION
  Report Type: 
  Country: None (occurrence: None)
  Receive Date: 20071219
  Receipt Date: 20071214
  Transmission Date: 20080405
  Serious: Yes (Life-Threatening)
  Sender: FDA-Public Use
  Company Number: PHBS2007IT20973

PATIENT
  Age: 34 Year
  Sex: Female

DRUGS (2)
  1. EXJADE [Suspect]
     Indication: HAEMOSIDEROSIS
     Dosage: 1000 MG/D
     Route: 048
     Dates: start: 20071201, end: 20071209
  2. EUTIROX [Concomitant]
     Dosage: 125 MG/D
     Dates: start: 19990101

REACTIONS (2)
  - GENERALISED ERYTHEMA [None]
  - PRURITUS [None]
